FAERS Safety Report 5492146-4 (Version None)
Quarter: 2007Q4

REPORT INFORMATION
  Report Type: 
  Country: None (occurrence: None)
  Receive Date: 20071018
  Receipt Date: 20071001
  Transmission Date: 20080405
  Serious: Yes (Disabling, Other)
  Sender: FDA-Public Use
  Company Number: 2007S1009258

PATIENT
  Age: 46 Year
  Sex: Female

DRUGS (2)
  1. AMNESTEEM [Suspect]
     Indication: ACNE
     Dosage: 80 MG; DAILY; ORAL
     Route: 048
     Dates: start: 20070817, end: 20070903
  2. ACCUTANE [Concomitant]

REACTIONS (1)
  - ERYTHEMA NODOSUM [None]
